FAERS Safety Report 8103918-1 (Version None)
Quarter: 2012Q1

REPORT INFORMATION
  Report Type: 
  Country: None (occurrence: None)
  Receive Date: 20120201
  Receipt Date: 20120117
  Transmission Date: 20120608
  Serious: Yes (Death)
  Sender: FDA-Public Use
  Company Number: AU-WATSON-2012-00927

PATIENT
  Age: 3 Year

DRUGS (2)
  1. VALPROATE SODIUM [Suspect]
     Indication: CONVULSION
  2. VALPROATE SODIUM [Suspect]
     Indication: ALPERS' DISEASE
     Dosage: UNK
     Route: 065

REACTIONS (4)
  - TOXICITY TO VARIOUS AGENTS [None]
  - CARDIAC ARREST [None]
  - HYPERKALAEMIA [None]
  - ACUTE HEPATIC FAILURE [None]
